FAERS Safety Report 7527380-2 (Version None)
Quarter: 2011Q2

REPORT INFORMATION
  Report Type: 
  Country: None (occurrence: None)
  Receive Date: 20110607
  Receipt Date: 20110524
  Transmission Date: 20111010
  Serious: Yes (Life-Threatening)
  Sender: FDA-Public Use
  Company Number: KR-JNJFOC-20110600151

PATIENT
  Sex: Male

DRUGS (10)
  1. THIOPENTAL SODIUM [Suspect]
     Indication: ANAESTHESIA
     Route: 064
  2. OLANZAPINE [Suspect]
     Indication: PRODUCT USED FOR UNKNOWN INDICATION
     Route: 064
  3. RISPERIDONE [Suspect]
     Indication: DRUG EXPOSURE DURING PREGNANCY
     Route: 064
  4. SUCCINYLCHOLINE CHLORIDE [Suspect]
     Indication: MUSCLE RELAXANT THERAPY
     Route: 064
  5. QUETIAPINE [Suspect]
     Indication: DRUG EXPOSURE DURING PREGNANCY
     Route: 064
  6. OLANZAPINE [Suspect]
     Route: 064
  7. ZOLPIDEM [Suspect]
     Indication: DRUG EXPOSURE DURING PREGNANCY
     Route: 064
  8. BENZTROPINE MESYLATE [Suspect]
     Indication: DRUG EXPOSURE DURING PREGNANCY
     Route: 064
  9. TRAZODONE HCL [Suspect]
     Indication: DRUG EXPOSURE DURING PREGNANCY
     Route: 064
  10. RITODRINE HYDROCHLORIDE [Suspect]
     Indication: PRODUCT USED FOR UNKNOWN INDICATION
     Route: 064

REACTIONS (4)
  - SMALL FOR DATES BABY [None]
  - PYLORIC STENOSIS [None]
  - NEONATAL RESPIRATORY DISTRESS SYNDROME [None]
  - PREMATURE BABY [None]
